FAERS Safety Report 18453926 (Version 3)
Quarter: 2021Q1

REPORT INFORMATION
  Report Type: Spontaneous
  Country: US (occurrence: US)
  Receive Date: 20201102
  Receipt Date: 20210311
  Transmission Date: 20210419
  Serious: Yes (Other)
  Sender: FDA-Public Use
  Company Number: US-GILEAD-2020-0501332

PATIENT
  Age: 34 Year
  Sex: Male

DRUGS (1)
  1. ATRIPLA [Suspect]
     Active Substance: EFAVIRENZ\EMTRICITABINE\TENOFOVIR DISOPROXIL FUMARATE
     Indication: HIV INFECTION
     Dosage: UNK
     Route: 048
     Dates: start: 201201, end: 20180111

REACTIONS (13)
  - Bone loss [Not Recovered/Not Resolved]
  - Bone density abnormal [Not Recovered/Not Resolved]
  - Bone density decreased [Unknown]
  - Multiple fractures [Not Recovered/Not Resolved]
  - Tibia fracture [Not Recovered/Not Resolved]
  - Fibula fracture [Not Recovered/Not Resolved]
  - Deep vein thrombosis [Recovered/Resolved]
  - Anxiety [Unknown]
  - Emotional distress [Unknown]
  - Osteopenia [Not Recovered/Not Resolved]
  - Pain [Unknown]
  - Osteonecrosis [Unknown]
  - Anhedonia [Unknown]

NARRATIVE: CASE EVENT DATE: 2020
